FAERS Safety Report 7003426-5 (Version None)
Quarter: 2010Q3

REPORT INFORMATION
  Report Type: 
  Country: None (occurrence: None)
  Receive Date: 20100920
  Receipt Date: 20100914
  Transmission Date: 20110219
  Serious: No
  Sender: FDA-Public Use
  Company Number: US-PFIZER INC-2010116828

PATIENT
  Sex: Female

DRUGS (2)
  1. DETROL [Suspect]
  2. DETROL LA [Suspect]
     Dosage: 4 MG, 1X/DAY

REACTIONS (1)
  - DRUG INEFFECTIVE [None]
